FAERS Safety Report 5812590-2 (Version None)
Quarter: 2008Q3

REPORT INFORMATION
  Report Type: 
  Country: None (occurrence: None)
  Receive Date: 20080714
  Receipt Date: 20080714
  Transmission Date: 20090109
  Serious: Yes (Death, Hospitalization)
  Sender: FDA-Public Use
  Company Number: None

PATIENT
  Age: 70 Year
  Sex: Female
  Weight: 76.2043 kg

DRUGS (1)
  1. AMIODARONE HCL [Suspect]
     Indication: CARDIOMYOPATHY
     Dates: start: 20061126, end: 20070530

REACTIONS (4)
  - DRUG TOXICITY [None]
  - LIVER DISORDER [None]
  - LUNG DISORDER [None]
  - THYROID DISORDER [None]
